FAERS Safety Report 4819499-1 (Version None)
Quarter: 2005Q4

REPORT INFORMATION
  Report Type: 
  Country: None (occurrence: None)
  Receive Date: 20051031
  Receipt Date: 20050630
  Transmission Date: 20060501
  Serious: No
  Sender: FDA-Public Use
  Company Number: 2005PV000212

PATIENT
  Sex: Female

DRUGS (2)
  1. SYMLIN [Suspect]
     Indication: DIABETES MELLITUS INSULIN-DEPENDENT
     Dosage: 30 UG; 15 UG; SC
     Route: 058
     Dates: end: 20050704
  2. SYMLIN [Suspect]
     Indication: DIABETES MELLITUS INSULIN-DEPENDENT
     Dosage: 30 UG; 15 UG; SC
     Route: 058
     Dates: start: 20050705

REACTIONS (2)
  - DEPRESSED MOOD [None]
  - FATIGUE [None]
